FAERS Safety Report 17994091 (Version 1)
Quarter: 2020Q3

REPORT INFORMATION
  Report Type: Report from Study
  Country: JP (occurrence: JP)
  Receive Date: 20200708
  Receipt Date: 20200708
  Transmission Date: 20201103
  Serious: Yes (Other)
  Sender: FDA-Public Use
  Company Number: JP-ROCHE-2635929

PATIENT

DRUGS (3)
  1. L?CYSTINE [Suspect]
     Active Substance: CYSTINE
     Indication: COLORECTAL CANCER
     Route: 065
  2. L?THEANINE [Suspect]
     Active Substance: DIETARY SUPPLEMENT
     Indication: COLORECTAL CANCER
     Route: 065
  3. CAPECITABINE. [Suspect]
     Active Substance: CAPECITABINE
     Indication: COLORECTAL CANCER
     Route: 048

REACTIONS (16)
  - Nausea [Unknown]
  - Neutrophil count decreased [Unknown]
  - Decreased appetite [Unknown]
  - Skin hyperpigmentation [Unknown]
  - Blood bilirubin increased [Unknown]
  - Anaemia [Unknown]
  - Vomiting [Unknown]
  - Palmar-plantar erythrodysaesthesia syndrome [Unknown]
  - Malaise [Unknown]
  - White blood cell count decreased [Unknown]
  - Blood creatinine increased [Unknown]
  - Stomatitis [Unknown]
  - Constipation [Unknown]
  - Abdominal pain [Unknown]
  - Skin disorder [Unknown]
  - Gamma-glutamyltransferase increased [Unknown]
